FAERS Safety Report 6283523-2 (Version None)
Quarter: 2009Q3

REPORT INFORMATION
  Report Type: 
  Country: None (occurrence: None)
  Receive Date: 20090721
  Receipt Date: 20090721
  Transmission Date: 20100115
  Serious: No
  Sender: FDA-Public Use
  Company Number: None

PATIENT
  Sex: Female
  Weight: 58.9676 kg

DRUGS (2)
  1. MONISTAT 1 COMBINATION PACK [Suspect]
     Indication: FUNGAL INFECTION
     Dosage: 1 - DOSE: 1200MG 1 VAG
     Route: 067
     Dates: start: 20090720, end: 20090720
  2. MONISTAT 1 COMBINATION PACK [Suspect]

REACTIONS (4)
  - BURNING SENSATION [None]
  - DYSPNOEA [None]
  - PAIN [None]
  - PRURITUS [None]
